FAERS Safety Report 4263375-2 (Version None)
Quarter: 2004Q1

REPORT INFORMATION
  Report Type: 
  Country: None (occurrence: None)
  Receive Date: 20040105
  Receipt Date: 20031230
  Transmission Date: 20041129
  Serious: Yes (Other)
  Sender: FDA-Public Use
  Company Number: WAES 0312USA02741

PATIENT
  Age: 50 Year

DRUGS (2)
  1. PRINIVIL [Concomitant]
     Route: 048
  2. ZOCOR [Suspect]
     Indication: DYSLIPIDAEMIA
     Route: 048

REACTIONS (1)
  - SPINAL COLUMN STENOSIS [None]
